FAERS Safety Report 16450640 (Version 1)
Quarter: 2019Q3

REPORT INFORMATION
  Report Type: Spontaneous
  Country: US (occurrence: US)
  Receive Date: 20190618
  Receipt Date: 20190618
  Transmission Date: 20191004
  Serious: Yes (Other)
  Sender: FDA-Public Use
  Company Number: None

PATIENT
  Age: 71 Year
  Sex: Female
  Weight: 84.15 kg

DRUGS (9)
  1. BEET JUICE [Concomitant]
  2. BENZONATE 100 MG CAPSULE GENENITC FOR: (TESSALON PERLES ZONATUSS) [Suspect]
     Active Substance: BENZONATATE
     Indication: COUGH
     Dosage: ?          QUANTITY:1 CAPSULE(S);?
     Route: 048
     Dates: start: 20190502, end: 20190504
  3. BEYER ASPIRIN [Concomitant]
  4. MOTRIN [Concomitant]
     Active Substance: IBUPROFEN
  5. OMEGA 3 CAPSULES [Concomitant]
  6. COCNUT WATER [Concomitant]
  7. ALPISTE POWDER [Concomitant]
  8. GARLIC TABLETS [Concomitant]
     Active Substance: GARLIC
  9. POASSIUM [Concomitant]

REACTIONS (6)
  - Constipation [None]
  - Nasal congestion [None]
  - Nausea [None]
  - Tremor [None]
  - Pharyngeal swelling [None]
  - Dysphonia [None]

NARRATIVE: CASE EVENT DATE: 20190503
